FAERS Safety Report 4449163-2 (Version None)
Quarter: 2004Q3

REPORT INFORMATION
  Report Type: 
  Country: None (occurrence: None)
  Receive Date: 20040910
  Receipt Date: 20040831
  Transmission Date: 20050211
  Serious: Yes (Disabling, Other)
  Sender: FDA-Public Use
  Company Number: 2004-03872

PATIENT
  Age: 52 Year
  Sex: Female
  Weight: 132.4 kg

DRUGS (3)
  1. LISINOPRIL AND HYDROCHLOROTHIAZIDE [Suspect]
     Indication: HYPERTENSION
     Dosage: 1 TABLET, DAILY, ORAL
     Route: 048
     Dates: start: 20040501, end: 20040808
  2. TEGRETOL [Concomitant]
  3. TYLENOL [Concomitant]

REACTIONS (17)
  - ASTHENIA [None]
  - BALANCE DISORDER [None]
  - BLOOD CREATININE INCREASED [None]
  - CHILLS [None]
  - DEHYDRATION [None]
  - DIFFICULTY IN WALKING [None]
  - DRUG HYPERSENSITIVITY [None]
  - HYPOAESTHESIA [None]
  - HYPOTENSION [None]
  - PAIN [None]
  - PYREXIA [None]
  - RASH ERYTHEMATOUS [None]
  - RASH PRURITIC [None]
  - RHABDOMYOLYSIS [None]
  - SCAB [None]
  - SWELLING FACE [None]
  - VIRAL INFECTION [None]
